FAERS Safety Report 9553610 (Version 1)
Quarter: 2013Q3

REPORT INFORMATION
  Report Type: Spontaneous
  Country: US (occurrence: None)
  Receive Date: 20130816
  Receipt Date: 20130816
  Transmission Date: 20140515
  Serious: No
  Sender: FDA-Public Use
  Company Number: US-012313

PATIENT
  Age: 46 Year
  Sex: Female
  Weight: 52.16 kg

DRUGS (6)
  1. PICOPREP (NOT SPECIFIED) [Suspect]
     Indication: BOWEL PREPARATION
     Dosage: FIRST PACKET
  2. LAMICTAL [Concomitant]
  3. DULCOLAX (BISACODYL) [Concomitant]
  4. CLONAZEPAM [Concomitant]
  5. ZOLOFT [Concomitant]
  6. CREON [Concomitant]

REACTIONS (2)
  - Defaecation urgency [None]
  - Painful defaecation [None]
